FAERS Safety Report 4895196-1 (Version None)
Quarter: 2006Q1

REPORT INFORMATION
  Report Type: 
  Country: None (occurrence: None)
  Receive Date: 20060130
  Receipt Date: 20060124
  Transmission Date: 20060701
  Serious: Yes (Hospitalization)
  Sender: FDA-Public Use
  Company Number: 2006UW01340

PATIENT
  Age: 61 Year
  Sex: Female

DRUGS (1)
  1. ARIMIDEX [Suspect]
     Route: 048

REACTIONS (5)
  - ARTHRALGIA [None]
  - MUSCULAR WEAKNESS [None]
  - STRESS [None]
  - URINARY TRACT INFECTION [None]
  - VIRAL INFECTION [None]
